FAERS Safety Report 4926997-9 (Version None)
Quarter: 2006Q1

REPORT INFORMATION
  Report Type: 
  Country: None (occurrence: None)
  Receive Date: 20060228
  Receipt Date: 20050929
  Transmission Date: 20060701
  Serious: No
  Sender: FDA-Public Use
  Company Number: US-GLAXOSMITHKLINE-A0576418A

PATIENT
  Age: 31 Year
  Sex: Male

DRUGS (3)
  1. LAMICTAL [Suspect]
     Indication: BIPOLAR DISORDER
     Dosage: 1000MG THREE TIMES PER DAY
     Route: 048
     Dates: start: 20050101
  2. CLONIDINE [Concomitant]
  3. TEGRETOL [Concomitant]

REACTIONS (5)
  - ANXIETY [None]
  - DIPLOPIA [None]
  - DRUG INEFFECTIVE [None]
  - NAUSEA [None]
  - VISION BLURRED [None]
